FAERS Safety Report 8810960 (Version 2)
Quarter: 2012Q4

REPORT INFORMATION
  Report Type: Report from Study
  Country: CA (occurrence: CA)
  Receive Date: 20120927
  Receipt Date: 20121120
  Transmission Date: 20130627
  Serious: Yes (Other)
  Sender: FDA-Public Use
  Company Number: CA-JNJFOC-20120908596

PATIENT
  Sex: Male
  Weight: 30 kg

DRUGS (8)
  1. REMICADE [Suspect]
     Indication: CROHN^S DISEASE
     Route: 042
     Dates: start: 20120913
  2. REMICADE [Suspect]
     Indication: CROHN^S DISEASE
     Route: 042
     Dates: start: 201201
  3. REMICADE [Suspect]
     Indication: CROHN^S DISEASE
     Route: 042
     Dates: start: 201202
  4. METHOTREXATE [Concomitant]
     Route: 065
  5. 6MP [Concomitant]
     Route: 058
  6. TYLENOL [Concomitant]
     Indication: PREMEDICATION
     Route: 065
  7. SOLU CORTEF [Concomitant]
     Indication: PREMEDICATION
     Route: 065
  8. NORMAL SALINE [Concomitant]
     Indication: PREMEDICATION
     Route: 042

REACTIONS (4)
  - Abdominal pain [Unknown]
  - Headache [Recovered/Resolved]
  - Hair texture abnormal [Unknown]
  - Alopecia [Unknown]
